FAERS Safety Report 7438365-9 (Version None)
Quarter: 2011Q2

REPORT INFORMATION
  Report Type: 
  Country: None (occurrence: None)
  Receive Date: 20110426
  Receipt Date: 20110403
  Transmission Date: 20111010
  Serious: Yes (Hospitalization, Other)
  Sender: FDA-Public Use
  Company Number: US-BAYER-200934532NA

PATIENT
  Age: 18 Year
  Sex: Female
  Weight: 58.957 kg

DRUGS (5)
  1. LAMICTAL [Concomitant]
     Dosage: 50 MG, QD
  2. SYNTHROID [Concomitant]
     Dosage: 50 MCG/24HR, QD
     Dates: start: 20000101
  3. CYMBALTA [Concomitant]
     Dosage: 60 MG, QD
  4. YAZ [Suspect]
     Indication: MENSTRUATION IRREGULAR
     Dosage: UNK
     Dates: start: 20081201, end: 20090401
  5. ABILIFY [Concomitant]
     Dosage: 25 MG, QD

REACTIONS (2)
  - PULMONARY EMBOLISM [None]
  - THROMBOSIS [None]
